FAERS Safety Report 9446740 (Version 2)
Quarter: 2013Q3

REPORT INFORMATION
  Report Type: Spontaneous
  Country: US (occurrence: US)
  Receive Date: 20130807
  Receipt Date: 20130904
  Transmission Date: 20140515
  Serious: No
  Sender: FDA-Public Use
  Company Number: US-AMGEN-USASP2013051134

PATIENT
  Age: 72 Year
  Sex: Female
  Weight: 51.7 kg

DRUGS (2)
  1. ENBREL [Suspect]
     Indication: RHEUMATOID ARTHRITIS
     Dosage: 50 MG, QWK
     Route: 058
     Dates: start: 20070319, end: 20130621
  2. MTX /00113801/ [Suspect]
     Indication: RHEUMATOID ARTHRITIS
     Dosage: 2.5 MG, UNK, 8 TABLETS WEEKLY
     Route: 048
     Dates: start: 20050602, end: 201306

REACTIONS (4)
  - Upper respiratory tract infection [Recovered/Resolved]
  - Sinusitis [Recovered/Resolved]
  - Bronchitis [Recovered/Resolved]
  - Ear infection [Recovered/Resolved]
